FAERS Safety Report 14259286 (Version 2)
Quarter: 2018Q1

REPORT INFORMATION
  Report Type: Report from Study
  Country: BE (occurrence: BE)
  Receive Date: 20171207
  Receipt Date: 20180319
  Transmission Date: 20180508
  Serious: Yes (Life-Threatening, Hospitalization, Other)
  Sender: FDA-Public Use
  Company Number: BE-JNJFOC-20171206866

PATIENT
  Age: 89 Year
  Sex: Male

DRUGS (2)
  1. IBRUTINIB [Suspect]
     Active Substance: IBRUTINIB
     Indication: CHRONIC LYMPHOCYTIC LEUKAEMIA
     Route: 048
     Dates: end: 20171201
  2. ASAFLOW [Concomitant]
     Active Substance: ASPIRIN
     Route: 065

REACTIONS (3)
  - White blood cell count decreased [Recovering/Resolving]
  - Haemorrhage urinary tract [Recovering/Resolving]
  - Bronchitis [Recovering/Resolving]

NARRATIVE: CASE EVENT DATE: 20171201
